FAERS Safety Report 8182283-8 (Version None)
Quarter: 2012Q1

REPORT INFORMATION
  Report Type: 
  Country: None (occurrence: None)
  Receive Date: 20120302
  Receipt Date: 20120227
  Transmission Date: 20120608
  Serious: Yes (Hospitalization)
  Sender: FDA-Public Use
  Company Number: PHEH2012US003109

PATIENT
  Sex: Male

DRUGS (2)
  1. NORVASC [Suspect]
  2. EXFORGE [Suspect]

REACTIONS (1)
  - DEVICE RELATED INFECTION [None]
